FAERS Safety Report 5124586-7 (Version None)
Quarter: 2006Q4

REPORT INFORMATION
  Report Type: 
  Country: None (occurrence: None)
  Receive Date: 20061011
  Receipt Date: 20061002
  Transmission Date: 20070319
  Serious: Yes (Death, Hospitalization, Other)
  Sender: FDA-Public Use
  Company Number: US-JNJFOC-20060606161

PATIENT
  Sex: Male

DRUGS (11)
  1. REMICADE [Suspect]
     Route: 042
  2. REMICADE [Suspect]
     Indication: CROHN'S DISEASE
     Dosage: 6 PREVIOUS DOSES-DATES NOT AVAILABLE
     Route: 042
  3. ZOLOFT [Concomitant]
     Indication: DEPRESSION
  4. AZASAN [Concomitant]
     Indication: CROHN'S DISEASE
  5. IRON [Concomitant]
  6. ASPIRIN [Concomitant]
  7. LONOX [Concomitant]
  8. LISINOPRIL [Concomitant]
  9. ZOCOR [Concomitant]
  10. PRANDIN [Concomitant]
     Indication: DIABETES MELLITUS NON-INSULIN-DEPENDENT
  11. FLAGYL [Concomitant]
     Indication: CROHN'S DISEASE

REACTIONS (4)
  - CEREBROVASCULAR ACCIDENT [None]
  - FALL [None]
  - HIP FRACTURE [None]
  - HYPERGLYCAEMIA [None]
